FAERS Safety Report 23829835 (Version 1)
Quarter: 2024Q2

REPORT INFORMATION
  Report Type: Spontaneous
  Country: US (occurrence: US)
  Receive Date: 20240508
  Receipt Date: 20240508
  Transmission Date: 20240716
  Serious: Yes (Life-Threatening, Hospitalization, Other)
  Sender: FDA-Public Use
  Company Number: US-MLMSERVICE-20200707-2366007-1

PATIENT
  Age: 32 Year
  Sex: Male

DRUGS (7)
  1. MYCOPHENOLIC ACID [Suspect]
     Active Substance: MYCOPHENOLIC ACID
     Indication: Immunosuppressant drug therapy
     Dosage: UNK
     Route: 065
     Dates: start: 2013, end: 2020
  2. PREDNISONE [Suspect]
     Active Substance: PREDNISONE
     Indication: Immunosuppressant drug therapy
     Dosage: UNK
     Route: 065
     Dates: start: 2013
  3. TACROLIMUS [Suspect]
     Active Substance: TACROLIMUS
     Indication: Immunosuppressant drug therapy
     Dosage: UNK
     Route: 065
     Dates: start: 2013
  4. THYMOCYTE IMMUNE GLOBULIN NOS [Concomitant]
     Active Substance: THYMOCYTE IMMUNE GLOBULIN NOS
     Indication: Transplant rejection
     Dosage: UNK
     Route: 065
  5. EMTRICITABINE [Concomitant]
     Active Substance: EMTRICITABINE
     Indication: HIV infection
     Dosage: UNK
     Route: 065
     Dates: start: 2010
  6. RALTEGRAVIR [Concomitant]
     Active Substance: RALTEGRAVIR
     Indication: HIV infection
     Dosage: UNK
     Route: 065
     Dates: start: 2010
  7. TENOFOVIR DISOPROXIL FUMARATE [Concomitant]
     Active Substance: TENOFOVIR DISOPROXIL FUMARATE
     Indication: HIV infection
     Dosage: UNK
     Route: 065
     Dates: start: 2010

REACTIONS (1)
  - COVID-19 [Recovered/Resolved]

NARRATIVE: CASE EVENT DATE: 20200301
